FAERS Safety Report 9450459 (Version 1)
Quarter: 2013Q3

REPORT INFORMATION
  Report Type: Spontaneous
  Country: GB (occurrence: None)
  Receive Date: 20130807
  Receipt Date: 20130807
  Transmission Date: 20140515
  Serious: Yes (Other)
  Sender: FDA-Public Use
  Company Number: 20130382

PATIENT
  Sex: Female

DRUGS (1)
  1. METHYLENE BLUE [Suspect]

REACTIONS (3)
  - Serotonin syndrome [None]
  - Overdose [None]
  - Contraindication to medical treatment [None]
